FAERS Safety Report 10146818 (Version 1)
Quarter: 2014Q2

REPORT INFORMATION
  Report Type: Spontaneous
  Country: US (occurrence: None)
  Receive Date: 20140430
  Receipt Date: 20140430
  Transmission Date: 20141212
  Serious: Yes (Hospitalization)
  Sender: FDA-Public Use
  Company Number: None

PATIENT
  Age: 74 Year
  Sex: Male

DRUGS (15)
  1. SIMVASTATIN [Suspect]
     Indication: HYPERLIPIDAEMIA
     Dosage: 20 MG (SIMVASTATIN) ARE, DAILY, PO?
     Route: 048
     Dates: end: 20110915
  2. FENOFIBRATE [Concomitant]
  3. ASA [Concomitant]
  4. FUROSEMIDE [Concomitant]
  5. NITROGLYCERIN [Concomitant]
  6. POTASSIUM CHLORIDE [Concomitant]
  7. ECHINACOA [Concomitant]
  8. CLOPIDOGREL [Concomitant]
  9. METOPROLOL TARTRATE [Concomitant]
  10. VALSARTAN [Concomitant]
  11. HYDROCHLOROTHIAZIDE [Concomitant]
  12. INSULIN GLARGINE [Concomitant]
  13. LEVOTHYROXINE [Concomitant]
  14. INSULIN ASPART [Concomitant]
  15. FELODIPINE [Concomitant]

REACTIONS (4)
  - Rhabdomyolysis [None]
  - Insomnia [None]
  - Renal failure acute [None]
  - Gout [None]
